FAERS Safety Report 18049453 (Version 1)
Quarter: 2020Q3

REPORT INFORMATION
  Report Type: Spontaneous
  Country: US (occurrence: US)
  Receive Date: 20200721
  Receipt Date: 20200721
  Transmission Date: 20201103
  Serious: No
  Sender: FDA-Public Use
  Company Number: US-SA-2020SA183733

PATIENT

DRUGS (9)
  1. CHILDREN^S ALLEGRA ALLERGY [Concomitant]
     Active Substance: FEXOFENADINE HYDROCHLORIDE
  2. SINUS MEDICATION [Concomitant]
     Active Substance: UNSPECIFIED INGREDIENT
  3. VITAMIN C [Concomitant]
     Active Substance: ASCORBIC ACID
  4. CYCLOBENZAPRINE. [Concomitant]
     Active Substance: CYCLOBENZAPRINE
  5. PREVACID [Concomitant]
     Active Substance: LANSOPRAZOLE
  6. VITAMIN B12 [Concomitant]
     Active Substance: CYANOCOBALAMIN
  7. VITAMIN D3 [Concomitant]
     Active Substance: CHOLECALCIFEROL
  8. AUBAGIO [Suspect]
     Active Substance: TERIFLUNOMIDE
     Indication: MULTIPLE SCLEROSIS
     Dosage: 14 MG, QD
     Route: 048
     Dates: start: 2014, end: 202004
  9. GAS?X [Concomitant]
     Active Substance: DIMETHICONE

REACTIONS (2)
  - Hepatic enzyme increased [Unknown]
  - Depression [Unknown]

NARRATIVE: CASE EVENT DATE: 201910
